FAERS Safety Report 20258208 (Version 1)
Quarter: 2021Q4

REPORT INFORMATION
  Report Type: Spontaneous
  Country: US (occurrence: US)
  Receive Date: 20211230
  Receipt Date: 20211230
  Transmission Date: 20220303
  Serious: Yes (Hospitalization, Other)
  Sender: FDA-Public Use
  Company Number: US-LUPIN PHARMACEUTICALS INC.-2021-25882

PATIENT
  Age: 72 Year
  Sex: Male

DRUGS (1)
  1. CEFUROXIME [Suspect]
     Active Substance: CEFUROXIME
     Indication: Prophylaxis
     Dosage: UNK (1.0 MG/0.1 ML)
     Route: 031

REACTIONS (2)
  - Macular oedema [Recovering/Resolving]
  - Macular detachment [Recovered/Resolved]
